FAERS Safety Report 20126935 (Version 1)
Quarter: 2021Q4

REPORT INFORMATION
  Report Type: Spontaneous
  Country: US (occurrence: None)
  Receive Date: 20211129
  Receipt Date: 20211129
  Transmission Date: 20220303
  Serious: Yes (Death)
  Sender: FDA-Public Use
  Company Number: None

PATIENT
  Age: 68 Year
  Sex: Male

DRUGS (1)
  1. TOCILIZUMAB [Suspect]
     Active Substance: TOCILIZUMAB
     Indication: COVID-19
     Dosage: FREQUENCY : ONCE;?OTHER ROUTE : IV;?
     Route: 050
     Dates: start: 20210905, end: 20210905

REACTIONS (4)
  - Acute kidney injury [None]
  - Metabolic acidosis [None]
  - Respiratory failure [None]
  - COVID-19 pneumonia [None]

NARRATIVE: CASE EVENT DATE: 20210906
